FAERS Safety Report 12405966 (Version 1)
Quarter: 2016Q2

REPORT INFORMATION
  Report Type: Spontaneous
  Country: US (occurrence: None)
  Receive Date: 20160525
  Receipt Date: 20160525
  Transmission Date: 20160815
  Serious: Yes (Disabling)
  Sender: FDA-Public Use
  Company Number: None

PATIENT
  Age: 66 Year
  Sex: Female
  Weight: 72.58 kg

DRUGS (5)
  1. AMOX-CLAV [Concomitant]
     Active Substance: AMOXICILLIN\CLAVULANATE POTASSIUM
  2. LEVOTHYROXINE. [Concomitant]
     Active Substance: LEVOTHYROXINE
  3. PROMETHAZINE-DM SYRUP [Concomitant]
  4. AZELASTINE HCL NASAL SOLUTION % [Suspect]
     Active Substance: AZELASTINE HYDROCHLORIDE
     Indication: NASAL CONGESTION
     Dosage: 5 PUFF (S) TWICE A DAY INHALATION
     Route: 055
     Dates: start: 20160520, end: 20160523
  5. VITAMIN D [Concomitant]
     Active Substance: CHOLECALCIFEROL

REACTIONS (3)
  - Headache [None]
  - Anosmia [None]
  - Ageusia [None]

NARRATIVE: CASE EVENT DATE: 20160523
